FAERS Safety Report 6316414-9 (Version None)
Quarter: 2009Q3

REPORT INFORMATION
  Report Type: 
  Country: None (occurrence: None)
  Receive Date: 20090820
  Receipt Date: 20090722
  Transmission Date: 20100115
  Serious: No
  Sender: FDA-Public Use
  Company Number: US-BAYER-200912668BCC

PATIENT
  Age: 78 Year
  Sex: Female
  Weight: 66 kg

DRUGS (4)
  1. ALEVE [Suspect]
     Indication: NECK PAIN
     Dosage: TOTAL DAILY DOSE: 220 MG  UNIT DOSE: 220 MG
     Route: 048
     Dates: start: 20090722
  2. TRIAMTERENE [Concomitant]
  3. LISINOPRIL [Concomitant]
  4. TYLENOL (CAPLET) [Concomitant]
     Indication: NECK PAIN

REACTIONS (1)
  - NECK PAIN [None]
